FAERS Safety Report 4551550-9 (Version None)
Quarter: 2005Q1

REPORT INFORMATION
  Report Type: 
  Country: None (occurrence: None)
  Receive Date: 20050110
  Receipt Date: 20050110
  Transmission Date: 20050727
  Serious: Yes (Disabling, Other)
  Sender: FDA-Public Use
  Company Number: None

PATIENT
  Age: 16 Year
  Sex: Female
  Weight: 52.1637 kg

DRUGS (1)
  1. DEPO-PROVERA [Suspect]
     Indication: CONTRACEPTION
     Dosage: 3 MONTH   INTRAMUSCU
     Route: 030
     Dates: start: 19981101, end: 20030801

REACTIONS (45)
  - ACNE [None]
  - ALOPECIA [None]
  - ARRHYTHMIA [None]
  - BLINDNESS TRANSIENT [None]
  - BONE DISORDER [None]
  - BONE PAIN [None]
  - BREAST PAIN [None]
  - BREAST TENDERNESS [None]
  - DIFFICULTY IN WALKING [None]
  - DISTURBANCE IN ATTENTION [None]
  - DIZZINESS [None]
  - DYSPAREUNIA [None]
  - DYSPEPSIA [None]
  - DYSPNOEA [None]
  - EXCITABILITY [None]
  - FACIAL PAIN [None]
  - FUNGAL INFECTION [None]
  - HEADACHE [None]
  - HIRSUTISM [None]
  - IMMUNE SYSTEM DISORDER [None]
  - IMPAIRED WORK ABILITY [None]
  - INADEQUATE LUBRICATION [None]
  - INTERVERTEBRAL DISC PROTRUSION [None]
  - LOSS OF LIBIDO [None]
  - MEMORY IMPAIRMENT [None]
  - MIGRAINE [None]
  - MULTIPLE ALLERGIES [None]
  - MUSCULOSKELETAL STIFFNESS [None]
  - MYALGIA [None]
  - NAIL DISORDER [None]
  - NASAL POLYPS [None]
  - NECK PAIN [None]
  - NERVOUSNESS [None]
  - PAIN [None]
  - PAIN IN JAW [None]
  - PALPITATIONS [None]
  - PANIC ATTACK [None]
  - PARALYSIS [None]
  - PARANOIA [None]
  - SINUS POLYP [None]
  - SINUSITIS [None]
  - SUICIDAL IDEATION [None]
  - TEETH BRITTLE [None]
  - VISION BLURRED [None]
  - VISUAL DISTURBANCE [None]
